FAERS Safety Report 7678251-2 (Version None)
Quarter: 2011Q3

REPORT INFORMATION
  Report Type: 
  Country: None (occurrence: None)
  Receive Date: 20110811
  Receipt Date: 20110801
  Transmission Date: 20111222
  Serious: Yes (Hospitalization)
  Sender: FDA-Public Use
  Company Number: US-JNJFOC-20090106811

PATIENT
  Sex: Male
  Weight: 65.2 kg

DRUGS (5)
  1. REMICADE [Suspect]
     Route: 042
     Dates: start: 20050224
  2. REMICADE [Suspect]
     Dosage: 34TH DOSE
     Route: 042
     Dates: start: 20090928
  3. REMICADE [Suspect]
     Indication: INFLAMMATORY BOWEL DISEASE
     Dosage: TOTAL 26 DOSES
     Route: 042
     Dates: start: 20081008
  4. REMICADE [Suspect]
     Dosage: TOTAL 18 DOSES
     Route: 042
     Dates: start: 20071105
  5. REMICADE [Suspect]
     Dosage: TOTAL 27 DOSES
     Route: 042
     Dates: start: 20081119

REACTIONS (1)
  - ABDOMINAL PAIN [None]
